FAERS Safety Report 15450729 (Version 2)
Quarter: 2018Q4

REPORT INFORMATION
  Report Type: Spontaneous
  Country: US (occurrence: US)
  Receive Date: 20181001
  Receipt Date: 20181005
  Transmission Date: 20190204
  Serious: No
  Sender: FDA-Public Use
  Company Number: US-SA-2018SA269735

PATIENT
  Sex: Female

DRUGS (5)
  1. REPATHA [Concomitant]
     Active Substance: EVOLOCUMAB
  2. LORAZEPAM. [Concomitant]
     Active Substance: LORAZEPAM
     Dosage: 1 MG
  3. ONDANSETRON [Concomitant]
     Active Substance: ONDANSETRON
     Dosage: 4 MG
  4. ALIROCUMAB PREFILLED PEN [Suspect]
     Active Substance: ALIROCUMAB
     Indication: TYPE IIA HYPERLIPIDAEMIA
     Dosage: 150 MG, QOW
     Route: 058
  5. PRALUENT [Suspect]
     Active Substance: ALIROCUMAB
     Indication: TYPE IIA HYPERLIPIDAEMIA
     Dosage: 150 MG, QOW
     Route: 058

REACTIONS (6)
  - Myalgia [Unknown]
  - Asthenia [Unknown]
  - Condition aggravated [Unknown]
  - Injection site swelling [Unknown]
  - Injection site erythema [Unknown]
  - Arthralgia [Unknown]
